FAERS Safety Report 24716315 (Version 2)
Quarter: 2025Q1

REPORT INFORMATION
  Report Type: Spontaneous
  Country: US (occurrence: US)
  Receive Date: 20241210
  Receipt Date: 20250311
  Transmission Date: 20250409
  Serious: Yes (Hospitalization, Other)
  Sender: JOHNSON AND JOHNSON
  Company Number: US-JNJFOC-20241215785

PATIENT
  Age: 63 Year
  Sex: Female

DRUGS (26)
  1. CARVYKTI [Suspect]
     Active Substance: CILTACABTAGENE AUTOLEUCEL
     Indication: Plasma cell myeloma refractory
     Route: 065
     Dates: start: 20231204
  2. NORCO [Concomitant]
     Active Substance: ACETAMINOPHEN\HYDROCODONE BITARTRATE
     Indication: Pain
     Dosage: 5-325 MG
     Route: 048
  3. SENNA PLUS [Concomitant]
     Active Substance: DOCUSATE SODIUM\SENNOSIDES\SENNOSIDES A AND B
     Indication: Constipation
     Route: 048
  4. LIORESAL [Concomitant]
     Active Substance: BACLOFEN
     Indication: Muscle spasms
     Route: 048
  5. PREGABALIN [Concomitant]
     Active Substance: PREGABALIN
     Route: 048
  6. ZOVIRAX [Concomitant]
     Active Substance: ACYCLOVIR
     Route: 048
  7. KENALOG [Concomitant]
     Active Substance: TRIAMCINOLONE ACETONIDE
     Route: 061
  8. ZOFRAN [Concomitant]
     Active Substance: ONDANSETRON HYDROCHLORIDE
     Indication: Nausea
     Route: 048
  9. TYLENOL [Concomitant]
     Active Substance: ACETAMINOPHEN
     Indication: Pain
  10. BACTRIM [Concomitant]
     Active Substance: SULFAMETHOXAZOLE\TRIMETHOPRIM
     Dosage: 400/80 MG
     Route: 048
  11. DIPHENHYDRAMINE HYDROCHLORIDE [Concomitant]
     Active Substance: DIPHENHYDRAMINE HYDROCHLORIDE
     Indication: Pruritus
     Route: 048
  12. HEPARIN SODIUM [Concomitant]
     Active Substance: HEPARIN SODIUM
     Indication: Flushing
     Route: 042
  13. CLARITHROMYCIN [Concomitant]
     Active Substance: CLARITHROMYCIN
  14. FLUTICASONE PROPIONATE [Concomitant]
     Active Substance: FLUTICASONE PROPIONATE
  15. AUGMENTIN [Concomitant]
     Active Substance: AMOXICILLIN\CLAVULANATE POTASSIUM
  16. TESSALON [Concomitant]
     Active Substance: BENZONATATE
  17. SINGULAIR [Concomitant]
     Active Substance: MONTELUKAST SODIUM
  18. KEFLEX [Concomitant]
     Active Substance: CEPHALEXIN
  19. DIFLUCAN [Concomitant]
     Active Substance: FLUCONAZOLE
  20. LEVOFLOXACIN [Concomitant]
     Active Substance: LEVOFLOXACIN
  21. ZYLOPRIM [Concomitant]
     Active Substance: ALLOPURINOL
  22. CLOBETASOL [Concomitant]
     Active Substance: CLOBETASOL
  23. ELIQUIS [Concomitant]
     Active Substance: APIXABAN
  24. ALUMINUM HYDROXIDE\MAGNESIUM CARBONATE [Concomitant]
     Active Substance: ALUMINUM HYDROXIDE\MAGNESIUM CARBONATE
  25. LOVENOX [Concomitant]
     Active Substance: ENOXAPARIN SODIUM
  26. LYRICA [Concomitant]
     Active Substance: PREGABALIN

REACTIONS (3)
  - Necrotising soft tissue infection [Unknown]
  - Cytokine release syndrome [Unknown]
  - Myelodysplastic syndrome [Not Recovered/Not Resolved]

NARRATIVE: CASE EVENT DATE: 20231212
